FAERS Safety Report 15147803 (Version 1)
Quarter: 2018Q3

REPORT INFORMATION
  Report Type: Spontaneous
  Country: GB (occurrence: GB)
  Receive Date: 20180716
  Receipt Date: 20180716
  Transmission Date: 20181010
  Serious: Yes (Other)
  Sender: FDA-Public Use
  Company Number: GB-JNJFOC-20180710555

PATIENT
  Age: 41 Year
  Sex: Female
  Weight: 70 kg

DRUGS (2)
  1. REGAINE [Suspect]
     Active Substance: MINOXIDIL
     Route: 061
  2. REGAINE [Suspect]
     Active Substance: MINOXIDIL
     Indication: ALOPECIA
     Dosage: 5 SPRAY IN 5 POINTS; IN TOTAL
     Route: 061
     Dates: start: 20180618, end: 20180620

REACTIONS (4)
  - Eyelid oedema [Unknown]
  - Swelling [Unknown]
  - Lymphadenopathy [Unknown]
  - Eye swelling [Not Recovered/Not Resolved]

NARRATIVE: CASE EVENT DATE: 20180620
